FAERS Safety Report 14031603 (Version 2)
Quarter: 2017Q4

REPORT INFORMATION
  Report Type: Report from Study
  Country: None (occurrence: SI)
  Receive Date: 20171003
  Receipt Date: 20171012
  Transmission Date: 20180321
  Serious: Yes (Hospitalization)
  Sender: FDA-Public Use
  Company Number: SI-ABBVIE-17K-261-2103299-00

PATIENT
  Age: 53 Year
  Sex: Female

DRUGS (1)
  1. HUMIRA [Suspect]
     Active Substance: ADALIMUMAB
     Indication: RHEUMATOID ARTHRITIS
     Route: 058
     Dates: start: 20160401, end: 20170907

REACTIONS (3)
  - Wound infection bacterial [Unknown]
  - Bladder disorder [Unknown]
  - Wound infection viral [Unknown]

NARRATIVE: CASE EVENT DATE: 20170907
